FAERS Safety Report 8174078-6 (Version None)
Quarter: 2012Q1

REPORT INFORMATION
  Report Type: 
  Country: None (occurrence: None)
  Receive Date: 20120224
  Receipt Date: 20120213
  Transmission Date: 20120608
  Serious: Yes (Other)
  Sender: FDA-Public Use
  Company Number: 2012SP008048

PATIENT
  Sex: Female

DRUGS (23)
  1. EUNERPAN [Concomitant]
  2. RIOPAN [Concomitant]
  3. BETAMETHASONE DIPROPIONATE/SALICYLIC ACID [Concomitant]
  4. KALIUM [Concomitant]
  5. DOLO-DOBENDAN [Concomitant]
  6. TEGRETOL [Suspect]
     Indication: ALCOHOL WITHDRAWAL SYNDROME
     Dates: start: 20081204, end: 20081208
  7. CALCIUM [Concomitant]
  8. GYNODIAN [Concomitant]
  9. MULTIBIONTA [Concomitant]
  10. FENISTIL [Concomitant]
  11. VALPROATE SODIUM [Concomitant]
  12. ACETYLCYSTEINE [Concomitant]
  13. ACETAMINOPHEN [Concomitant]
  14. LYGAL (PREDNISOLONE+SALICYLIC ACID) [Concomitant]
  15. KERASAL [Concomitant]
  16. MAGNESIUM VERLA [Concomitant]
  17. PSORACUTAN [Concomitant]
  18. NOVALGIN [Concomitant]
  19. LEVOFLOXACIN [Concomitant]
  20. DIPROSALIC (BETAMETHASONE DIPROPIONATE/SALICYLIC ACID) [Suspect]
     Indication: PSORIASIS
     Dates: start: 20081210
  21. MAGNESIUM [Concomitant]
  22. CAMPRAL [Concomitant]
  23. DESQUAMAN [Concomitant]

REACTIONS (3)
  - PYREXIA [None]
  - STEVENS-JOHNSON SYNDROME [None]
  - DYSPHAGIA [None]
